FAERS Safety Report 6105807-0 (Version None)
Quarter: 2009Q1

REPORT INFORMATION
  Report Type: 
  Country: None (occurrence: None)
  Receive Date: 20090306
  Receipt Date: 20090304
  Transmission Date: 20090719
  Serious: Yes (Hospitalization)
  Sender: FDA-Public Use
  Company Number: HK-BAXTER-2009BH003434

PATIENT
  Age: 75 Year
  Sex: Female
  Weight: 76 kg

DRUGS (16)
  1. DIANEAL [Suspect]
     Indication: PERITONEAL DIALYSIS
     Route: 033
     Dates: start: 20090216
  2. ALLOPURINOL [Concomitant]
     Indication: GOUT
     Route: 048
     Dates: start: 20080415
  3. RECORMON [Concomitant]
     Indication: BLOOD ERYTHROPOIETIN ABNORMAL
     Route: 058
     Dates: start: 20080919
  4. FAMOTIDINE [Concomitant]
     Indication: HIATUS HERNIA
     Route: 048
     Dates: start: 20080415
  5. FERROUS SULFATE TAB [Concomitant]
     Indication: BLOOD IRON
     Route: 048
     Dates: start: 20080415
  6. LASIX [Concomitant]
     Indication: FLUID RETENTION
     Route: 048
     Dates: start: 20080415
  7. LISINOPRIL [Concomitant]
     Route: 048
     Dates: start: 20080409
  8. ALDACTONE [Concomitant]
     Indication: FLUID RETENTION
     Route: 048
     Dates: start: 20080730
  9. METOPROLOL [Concomitant]
     Indication: HYPERTENSION
     Route: 048
     Dates: start: 20090102
  10. CALTRATE [Concomitant]
     Indication: ELECTROLYTE IMBALANCE
     Route: 048
     Dates: start: 20080312
  11. DIULO [Concomitant]
     Indication: FLUID RETENTION
     Route: 048
     Dates: start: 20080415
  12. MIXTARD 30 HM [Concomitant]
     Indication: BLOOD INSULIN
     Route: 058
     Dates: start: 20090121
  13. ACTRAPID HM [Concomitant]
     Indication: BLOOD INSULIN
     Route: 058
     Dates: start: 20090121
  14. ACTRAPID HM [Concomitant]
     Route: 058
     Dates: start: 20090121
  15. ACTRAPID HM [Concomitant]
     Route: 058
     Dates: start: 20090121
  16. ASPIRIN [Concomitant]
     Indication: ANTICOAGULANT THERAPY
     Route: 048

REACTIONS (1)
  - HYPERGLYCAEMIA [None]
